FAERS Safety Report 7006248-4 (Version None)
Quarter: 2010Q3

REPORT INFORMATION
  Report Type: 
  Country: None (occurrence: None)
  Receive Date: 20100921
  Receipt Date: 20100909
  Transmission Date: 20110219
  Serious: Yes (Other)
  Sender: FDA-Public Use
  Company Number: US-PFIZER INC-2010107610

PATIENT
  Sex: Female

DRUGS (2)
  1. ARTHROTEC [Suspect]
     Indication: SLE ARTHRITIS
  2. ARTHROTEC [Suspect]
     Indication: ARTHRALGIA

REACTIONS (1)
  - DIARRHOEA HAEMORRHAGIC [None]
